FAERS Safety Report 18970727 (Version 1)
Quarter: 2021Q1

REPORT INFORMATION
  Report Type: Report from Study
  Country: US (occurrence: US)
  Receive Date: 20210304
  Receipt Date: 20210304
  Transmission Date: 20210420
  Serious: Yes (Other)
  Sender: FDA-Public Use
  Company Number: US-JAZZ-2021-US-003705

PATIENT
  Sex: Female

DRUGS (7)
  1. XYREM [Suspect]
     Active Substance: SODIUM OXYBATE
     Indication: NARCOLEPSY
     Dosage: 2.25 GRAM, BID
     Route: 048
     Dates: start: 201310, end: 201311
  2. HALDOL [Suspect]
     Active Substance: HALOPERIDOL
     Dosage: 5 MG
     Route: 065
     Dates: end: 20210228
  3. RISPERIDONE. [Suspect]
     Active Substance: RISPERIDONE
     Indication: PRODUCT USED FOR UNKNOWN INDICATION
     Route: 065
  4. XYREM [Suspect]
     Active Substance: SODIUM OXYBATE
     Dosage: 4.5 GRAM, BID
     Route: 048
     Dates: start: 201401
  5. XYREM [Suspect]
     Active Substance: SODIUM OXYBATE
     Indication: CATAPLEXY
     Dosage: 3.75 GRAM, BID
     Route: 048
     Dates: start: 201311, end: 201401
  6. HALDOL [Suspect]
     Active Substance: HALOPERIDOL
     Dosage: 1 MG
     Route: 065
     Dates: end: 20210228
  7. HALDOL [Suspect]
     Active Substance: HALOPERIDOL
     Indication: PRODUCT USED FOR UNKNOWN INDICATION
     Dosage: 10 MG
     Route: 065
     Dates: start: 20200731, end: 20200831

REACTIONS (2)
  - Dystonia [Unknown]
  - Akathisia [Unknown]
